FAERS Safety Report 4361977-6 (Version None)
Quarter: 2004Q2

REPORT INFORMATION
  Report Type: 
  Country: None (occurrence: None)
  Receive Date: 20040521
  Receipt Date: 20040210
  Transmission Date: 20050107
  Serious: No
  Sender: FDA-Public Use
  Company Number: US-GLAXOSMITHKLINE-A0497734A

PATIENT
  Age: 32 Year
  Sex: Male

DRUGS (3)
  1. WELLBUTRIN XL [Suspect]
     Indication: DEPRESSION
     Dosage: 300MG PER DAY
     Route: 048
  2. REMERON [Concomitant]
  3. BUSPAR [Concomitant]

REACTIONS (3)
  - ANXIETY [None]
  - PALPITATIONS [None]
  - PARANOIA [None]
